FAERS Safety Report 9494524 (Version 2)
Quarter: 2013Q3

REPORT INFORMATION
  Report Type: Spontaneous
  Country: FR (occurrence: FR)
  Receive Date: 20130903
  Receipt Date: 20130903
  Transmission Date: 20140515
  Serious: Yes (Hospitalization, Other)
  Sender: FDA-Public Use
  Company Number: FR-PFIZER INC-FR-WYE-G03475709

PATIENT
  Age: 54 Year
  Sex: Female

DRUGS (17)
  1. EFFEXOR [Suspect]
     Indication: DEPRESSIVE SYMPTOM
     Dosage: UNK
     Route: 048
     Dates: start: 2008
  2. MEDIATOR [Suspect]
     Indication: WEIGHT CONTROL
     Dosage: BETWEEN 300MG AND 450MG TOTAL DAILY
     Route: 048
     Dates: start: 200612, end: 200812
  3. CARDENSIEL [Suspect]
     Dosage: UNK
     Route: 048
     Dates: start: 200712
  4. TRIATEC [Suspect]
     Dosage: UNK
     Route: 065
     Dates: start: 200712
  5. LASILIX [Suspect]
     Dosage: UNK
     Route: 065
     Dates: start: 200712
  6. HEMIGOXINE NATIVELLE [Suspect]
     Dosage: UNK
     Route: 065
     Dates: start: 200712
  7. ATARAX [Suspect]
     Dosage: UNK
     Route: 065
     Dates: start: 200712
  8. KARDEGIC [Concomitant]
     Dosage: UNK
     Route: 065
  9. DETENSIEL [Concomitant]
     Route: 065
  10. KENZEN [Concomitant]
     Dosage: UNK
     Route: 065
  11. TRANXENE [Concomitant]
     Dosage: UNK
     Route: 065
  12. OGAST [Concomitant]
     Dosage: UNK
     Route: 065
  13. SINGULAIR [Concomitant]
     Dosage: UNK
     Route: 065
  14. ELISOR [Concomitant]
     Dosage: UNK
     Route: 065
  15. ZYBAN [Concomitant]
     Dosage: UNK
  16. TETRAZEPAM [Concomitant]
     Dosage: UNK
  17. DIVARIUS [Concomitant]
     Dosage: UNK

REACTIONS (6)
  - Aortic valve incompetence [Recovered/Resolved with Sequelae]
  - Mitral valve incompetence [Recovered/Resolved with Sequelae]
  - Tricuspid valve incompetence [Unknown]
  - Type 2 diabetes mellitus [Unknown]
  - Cardio-respiratory arrest [Unknown]
  - Cardiomyopathy [Unknown]
